FAERS Safety Report 16684264 (Version 1)
Quarter: 2019Q3

REPORT INFORMATION
  Report Type: Spontaneous
  Country: US (occurrence: US)
  Receive Date: 20190808
  Receipt Date: 20190808
  Transmission Date: 20191004
  Serious: No
  Sender: FDA-Public Use
  Company Number: US-B.I. PHARMACEUTICALS,INC./RIDGEFIELD-2019-US-001089

PATIENT
  Sex: Female

DRUGS (1)
  1. JARDIANCE [Suspect]
     Active Substance: EMPAGLIFLOZIN
     Indication: DIABETES MELLITUS
     Route: 065
     Dates: end: 2019

REACTIONS (7)
  - Peripheral swelling [Recovered/Resolved]
  - Fungal infection [Recovered/Resolved]
  - Fall [Recovered/Resolved]
  - Blood glucose abnormal [Recovered/Resolved]
  - Syncope [Recovered/Resolved]
  - Respiratory disorder [Recovered/Resolved]
  - Balance disorder [Recovered/Resolved]
